FAERS Safety Report 4965922-1 (Version None)
Quarter: 2006Q2

REPORT INFORMATION
  Report Type: 
  Country: None (occurrence: None)
  Receive Date: 20060403
  Receipt Date: 20060320
  Transmission Date: 20061013
  Serious: Yes (Death, Hospitalization)
  Sender: FDA-Public Use
  Company Number: 2006038620

PATIENT
  Age: 43 Year
  Sex: Male

DRUGS (7)
  1. SUTENT [Suspect]
     Indication: METASTATIC RENAL CELL CARCINOMA
     Dosage: 50 MG (50 MG, 1 IN 1 D), ORAL
     Route: 048
     Dates: start: 20060213, end: 20060309
  2. TYLENOL [Concomitant]
  3. SENOKOT [Concomitant]
  4. COLACE (DOCUSATE SODIUM) [Concomitant]
  5. MORPHINE [Concomitant]
  6. OXYCODONE HYDROCHLORIDE AND ACETAMINOPHEN [Concomitant]
  7. ZOFRAN [Concomitant]

REACTIONS (5)
  - DYSPNOEA [None]
  - GENERAL PHYSICAL HEALTH DETERIORATION [None]
  - HYPOTENSION [None]
  - PAIN [None]
  - PLATELET COUNT DECREASED [None]
